FAERS Safety Report 5548886-1 (Version None)
Quarter: 2007Q4

REPORT INFORMATION
  Report Type: 
  Country: None (occurrence: None)
  Receive Date: 20071204
  Receipt Date: 20071129
  Transmission Date: 20080405
  Serious: Yes (Other)
  Sender: FDA-Public Use
  Company Number: IG486

PATIENT
  Age: 62 Year
  Sex: Female
  Weight: 57 kg

DRUGS (2)
  1. FLEBOGAMMA [Suspect]
     Indication: AUTOIMMUNE THROMBOCYTOPENIA
     Dosage: 400 MG/KG/MONTH, IV; MARCH - OCTOBER 2007
     Route: 042
     Dates: end: 20071001
  2. DEFLAZACORT (GLUCOCORTICOID) [Concomitant]

REACTIONS (2)
  - HEPATITIS C [None]
  - THROMBOCYTOPENIA [None]
